FAERS Safety Report 9163529 (Version 1)
Quarter: 2013Q1

REPORT INFORMATION
  Report Type: Spontaneous
  Country: CH (occurrence: CH)
  Receive Date: 20130314
  Receipt Date: 20130314
  Transmission Date: 20140127
  Serious: Yes (Death, Hospitalization)
  Sender: FDA-Public Use
  Company Number: CH-WATSON-2013-03885

PATIENT
  Age: 73 Year
  Sex: Male

DRUGS (4)
  1. CYCLOSPORINE [Suspect]
     Indication: RENAL TRANSPLANT
     Dosage: UNK, UNKNOWN
     Route: 065
  2. PREDNISONE (UNKNOWN) [Suspect]
     Indication: RENAL TRANSPLANT
     Dosage: UNK, UNKNOWN
     Route: 065
  3. MYCOPHENOLATE MOFETIL (UNKNOWN) [Suspect]
     Indication: RENAL TRANSPLANT
     Dosage: UNK, UNKNOWN
     Route: 065
  4. LEFLUNOMIDE [Suspect]
     Indication: RENAL TRANSPLANT
     Dosage: UNK, UNKNOWN
     Route: 065

REACTIONS (5)
  - American trypanosomiasis [Fatal]
  - Infection reactivation [Fatal]
  - Myocarditis [Fatal]
  - Cardiogenic shock [Fatal]
  - Polyomavirus-associated nephropathy [Fatal]
